FAERS Safety Report 4682979-6 (Version None)
Quarter: 2005Q2

REPORT INFORMATION
  Report Type: 
  Country: None (occurrence: None)
  Receive Date: 20050602
  Receipt Date: 20050207
  Transmission Date: 20051028
  Serious: No
  Sender: FDA-Public Use
  Company Number: USA050290172

PATIENT
  Age: 56 Year
  Sex: Female
  Weight: 91 kg

DRUGS (6)
  1. CYMBALTA [Suspect]
     Indication: DEPRESSION
     Dosage: 30 MG DAY
     Dates: start: 20050201
  2. LITHIUM [Concomitant]
  3. KLONOPIN [Concomitant]
  4. THYROID TAB [Concomitant]
  5. COUMADIN [Concomitant]
  6. ZOCOR (SIMVASTATIN RATIOPHARM) [Concomitant]

REACTIONS (3)
  - DEPRESSION [None]
  - HEADACHE [None]
  - HOT FLUSH [None]
